FAERS Safety Report 4709035-2 (Version None)
Quarter: 2005Q3

REPORT INFORMATION
  Report Type: 
  Country: None (occurrence: None)
  Receive Date: 20050707
  Receipt Date: 20050623
  Transmission Date: 20060218
  Serious: Yes (Hospitalization, Other)
  Sender: FDA-Public Use
  Company Number: 2005084027

PATIENT
  Age: 82 Year
  Sex: Male

DRUGS (8)
  1. VIAGRA [Suspect]
     Indication: ILL-DEFINED DISORDER
     Dosage: 100 MG
  2. ATENOLOL [Concomitant]
  3. ACETAMINOPHEN [Concomitant]
  4. TRAMADOL HCL [Concomitant]
  5. ACETYLSALICYLATE LYSINE (ACETYLSALICYLATE LYSINE) [Concomitant]
  6. ALFUZOSIN (ALFUZOSIN) [Concomitant]
  7. FINASTERIDE [Concomitant]
  8. DI-GESIC (DEXTROPROPOXYPHENE, PARACETAMOL) [Concomitant]

REACTIONS (2)
  - AMAUROSIS [None]
  - MIGRAINE WITH AURA [None]
